FAERS Safety Report 7750359-2 (Version None)
Quarter: 2011Q3

REPORT INFORMATION
  Report Type: 
  Country: None (occurrence: None)
  Receive Date: 20110912
  Receipt Date: 20110829
  Transmission Date: 20111222
  Serious: Yes (Hospitalization, Other)
  Sender: FDA-Public Use
  Company Number: AUR-APL-2011-04920

PATIENT
  Age: 81 Year
  Sex: Male

DRUGS (8)
  1. LEXOMIL (BROMAZEPAM) [Suspect]
     Indication: PRODUCT USED FOR UNKNOWN INDICATION
     Dosage: ORAL
     Route: 048
     Dates: start: 20110720, end: 20110723
  2. PANTOPRAZOLE [Suspect]
     Indication: PRODUCT USED FOR UNKNOWN INDICATION
     Dosage: (40 MG),ORAL
     Route: 048
     Dates: start: 20110720, end: 20110723
  3. AMLODIPINE [Suspect]
     Indication: MYOCARDIAL ISCHAEMIA
     Dosage: (5 MG),ORAL
     Route: 048
     Dates: start: 20110501, end: 20110723
  4. CLOPIDOGREL [Suspect]
     Indication: MYOCARDIAL ISCHAEMIA
     Dosage: (75 MG),ORAL
     Route: 048
     Dates: start: 20110720, end: 20110723
  5. BISOPROLOL FUMARATE [Suspect]
     Indication: MYOCARDIAL ISCHAEMIA
     Dosage: (10 MG),ORAL
     Route: 048
     Dates: start: 20110501, end: 20110723
  6. SIMVASTATIN [Suspect]
     Indication: DYSLIPIDAEMIA
     Dosage: (40 MG),ORAL
     Route: 048
     Dates: start: 20110501
  7. PERINDOPRIL ERBUMINE [Suspect]
     Indication: MYOCARDIAL ISCHAEMIA
     Dosage: (2.5 MG),ORAL
     Route: 048
     Dates: start: 20110501, end: 20110729
  8. ASPIRIN [Suspect]
     Indication: MYOCARDIAL ISCHAEMIA
     Dosage: (75 MG),ORAL
     Route: 048
     Dates: start: 20110501, end: 20110723

REACTIONS (3)
  - THROMBOCYTOPENIC PURPURA [None]
  - MOUTH HAEMORRHAGE [None]
  - HAEMATOMA [None]
